FAERS Safety Report 24564930 (Version 1)
Quarter: 2024Q4

REPORT INFORMATION
  Report Type: Spontaneous
  Country: US (occurrence: US)
  Receive Date: 20241030
  Receipt Date: 20241030
  Transmission Date: 20250115
  Serious: Yes (Other)
  Sender: PFIZER
  Company Number: US-PFIZER INC-PV202400140044

PATIENT
  Age: 29 Year
  Sex: Female
  Weight: 83.9 kg

DRUGS (4)
  1. PRISTIQ EXTENDED-RELEASE [Suspect]
     Active Substance: DESVENLAFAXINE SUCCINATE
     Dosage: 50 MG
  2. BUSPAR [Suspect]
     Active Substance: BUSPIRONE HYDROCHLORIDE
     Dosage: 5 MG, 2X/DAY
  3. PROPRANOLOL [Suspect]
     Active Substance: PROPRANOLOL HYDROCHLORIDE
     Dosage: 10 MG, AS NEEDED
  4. VALSARTAN [Suspect]
     Active Substance: VALSARTAN
     Dosage: 40 MG

REACTIONS (17)
  - Ventricular tachycardia [Unknown]
  - Alopecia [Not Recovered/Not Resolved]
  - Stress [Not Recovered/Not Resolved]
  - Anxiety disorder [Not Recovered/Not Resolved]
  - Chest discomfort [Unknown]
  - Dyspnoea [Unknown]
  - Pain [Unknown]
  - Hot flush [Unknown]
  - Mood swings [Unknown]
  - Gastrointestinal disorder [Unknown]
  - Heart valve incompetence [Unknown]
  - Sleep apnoea syndrome [Recovering/Resolving]
  - Hypertension [Recovering/Resolving]
  - Obsessive-compulsive disorder [Recovering/Resolving]
  - Generalised anxiety disorder [Recovering/Resolving]
  - Post-traumatic stress disorder [Recovering/Resolving]
  - Blood cholesterol increased [Recovering/Resolving]
